FAERS Safety Report 15734218 (Version 1)
Quarter: 2018Q4

REPORT INFORMATION
  Report Type: Spontaneous
  Country: US (occurrence: US)
  Receive Date: 20181203
  Receipt Date: 20181203
  Transmission Date: 20190205
  Serious: Yes (Death)
  Sender: FDA-Public Use
  Company Number: None

PATIENT
  Age: 79 Year
  Sex: Female
  Weight: 67.5 kg

DRUGS (1)
  1. BUMEX [Suspect]
     Active Substance: BUMETANIDE
     Dates: start: 20181117, end: 20181117

REACTIONS (3)
  - Thrombosis [None]
  - Hypopnoea [None]
  - Dyspnoea [None]

NARRATIVE: CASE EVENT DATE: 20181117
